FAERS Safety Report 6404141-9 (Version None)
Quarter: 2009Q4

REPORT INFORMATION
  Report Type: 
  Country: None (occurrence: None)
  Receive Date: 20091013
  Receipt Date: 20091004
  Transmission Date: 20100525
  Serious: Yes (Life-Threatening, Hospitalization, Other)
  Sender: FDA-Public Use
  Company Number: 2009EN000175

PATIENT
  Age: 19 Year
  Sex: Female

DRUGS (9)
  1. ONCASPAR [Suspect]
     Indication: ACUTE LYMPHOCYTIC LEUKAEMIA
     Dosage: 4300 IU/X1
     Dates: start: 20090506, end: 20090506
  2. PREDNISONE TAB [Concomitant]
  3. OMEPRAZOLE [Concomitant]
  4. CYCLIZINE [Concomitant]
  5. METOCLOPRAMIDE [Concomitant]
  6. NORESTISTERONE [Concomitant]
  7. METHOTREXATE [Concomitant]
  8. VINCRISTINE [Concomitant]
  9. DAUNORUBICIN HCL [Concomitant]

REACTIONS (5)
  - CAECITIS [None]
  - GENERAL PHYSICAL HEALTH DETERIORATION [None]
  - MALAISE [None]
  - OROPHARYNGEAL PAIN [None]
  - RENAL IMPAIRMENT [None]
